FAERS Safety Report 9287663 (Version 1)
Quarter: 2013Q2

REPORT INFORMATION
  Report Type: Report from Study
  Country: AR (occurrence: AR)
  Receive Date: 20130514
  Receipt Date: 20130514
  Transmission Date: 20140414
  Serious: Yes (Hospitalization)
  Sender: FDA-Public Use
  Company Number: PHHY2013AR046988

PATIENT
  Sex: Female

DRUGS (2)
  1. ONBREZ [Suspect]
     Indication: CHRONIC OBSTRUCTIVE PULMONARY DISEASE
     Dosage: 300 UG, QD
     Dates: start: 2011
  2. NICOTINELL CLASSIC [Suspect]
     Indication: SMOKING CESSATION THERAPY
     Dosage: UNK
     Route: 003

REACTIONS (3)
  - Chronic obstructive pulmonary disease [Recovered/Resolved]
  - Bronchospasm [Recovered/Resolved]
  - Infection [Recovered/Resolved]
